FAERS Safety Report 14221853 (Version 1)
Quarter: 2017Q4

REPORT INFORMATION
  Report Type: Spontaneous
  Country: JP (occurrence: JP)
  Receive Date: 20171124
  Receipt Date: 20171124
  Transmission Date: 20180321
  Serious: Yes (Death, Other)
  Sender: FDA-Public Use
  Company Number: JP-BRISTOL-MYERS SQUIBB COMPANY-B013324

PATIENT
  Age: 47 Year
  Sex: Male
  Weight: 37 kg

DRUGS (1)
  1. KENALOG-40 [Suspect]
     Active Substance: TRIAMCINOLONE ACETONIDE
     Indication: ASTHMA
     Dosage: UNK
     Route: 030
     Dates: start: 19780101, end: 19871231

REACTIONS (8)
  - Pulmonary oedema [Unknown]
  - Muscle atrophy [Unknown]
  - Cardiac failure [Unknown]
  - Palpitations [Unknown]
  - Multiple organ dysfunction syndrome [Fatal]
  - Muscular weakness [Unknown]
  - Dyspnoea exertional [Unknown]
  - Weight decreased [Unknown]

NARRATIVE: CASE EVENT DATE: 1985
